FAERS Safety Report 7267088-4 (Version None)
Quarter: 2011Q1

REPORT INFORMATION
  Report Type: 
  Country: None (occurrence: None)
  Receive Date: 20110201
  Receipt Date: 20110121
  Transmission Date: 20110831
  Serious: Yes (Hospitalization)
  Sender: FDA-Public Use
  Company Number: PHHY2010FR89734

PATIENT
  Sex: Male
  Weight: 40 kg

DRUGS (5)
  1. TEGRETOL [Suspect]
     Indication: EPILEPSY
     Dosage: 400 MG
  2. GARDENAL [Concomitant]
     Indication: EPILEPSY
  3. RIVOTRIL [Concomitant]
     Indication: EPILEPSY
  4. TEGRETOL [Suspect]
     Dosage: 700 MG, DAILY 400-0-300
  5. LAMICTAL [Concomitant]
     Indication: EPILEPSY

REACTIONS (5)
  - BALANCE DISORDER [None]
  - DECREASED APPETITE [None]
  - WRONG TECHNIQUE IN DRUG USAGE PROCESS [None]
  - DIZZINESS [None]
  - FALL [None]
